FAERS Safety Report 5161817-1 (Version None)
Quarter: 2006Q4

REPORT INFORMATION
  Report Type: 
  Country: None (occurrence: None)
  Receive Date: 20061130
  Receipt Date: 20061031
  Transmission Date: 20070319
  Serious: Yes (Hospitalization, Disabling, Other)
  Sender: FDA-Public Use
  Company Number: JP-ELI_LILLY_AND_COMPANY-JP200611000001

PATIENT
  Age: 81 Year
  Sex: Male
  Weight: 70 kg

DRUGS (10)
  1. LEUPLIN [Concomitant]
     Indication: PROSTATE CANCER
     Dosage: 11.25 MG, OTHER
     Route: 058
     Dates: start: 20050701, end: 20061026
  2. MAGNESIUM OXIDE [Concomitant]
     Indication: CONSTIPATION
     Dosage: 660 MG, 3/D
     Route: 048
  3. BLOPRESS                                /GFR/ [Concomitant]
     Indication: HYPERTENSION
     Dosage: 8 MG, DAILY (1/D)
     Route: 048
  4. OSTELUC [Concomitant]
     Indication: BACK PAIN
     Dosage: 200 MG, 2/D
     Route: 048
  5. GASMOTIN [Concomitant]
     Indication: STOMACH DISCOMFORT
     Dosage: 5 MG, 3/D
     Route: 048
  6. HARNAL [Concomitant]
     Indication: DYSURIA
     Dosage: UNK, UNKNOWN
     Route: 048
  7. PURSENNID /SCH/ [Concomitant]
     Indication: CONSTIPATION
     Dosage: 36 MG, OTHER
     Route: 048
  8. UBRETID [Concomitant]
     Indication: DYSURIA
     Dosage: 5 MG, DAILY (1/D)
     Route: 048
  9. ADALAT CR                               /THA/ [Concomitant]
     Indication: HYPERTENSION
     Dosage: 20 MG, DAILY (1/D)
     Route: 048
     Dates: start: 20061108
  10. GEMZAR [Suspect]
     Indication: BILE DUCT CANCER
     Dosage: 1000 MG, OTHER
     Route: 042
     Dates: start: 20060316, end: 20061026

REACTIONS (12)
  - CEREBRAL ARTERY STENOSIS [None]
  - DROOLING [None]
  - FALL [None]
  - GAIT DISTURBANCE [None]
  - OEDEMA PERIPHERAL [None]
  - PLATELET COUNT DECREASED [None]
  - PLEURAL EFFUSION [None]
  - PNEUMONIA [None]
  - PYREXIA [None]
  - SPEECH DISORDER [None]
  - SPUTUM RETENTION [None]
  - WHITE BLOOD CELL COUNT DECREASED [None]
